FAERS Safety Report 8510667-4 (Version None)
Quarter: 2012Q3

REPORT INFORMATION
  Report Type: 
  Country: None (occurrence: None)
  Receive Date: 20120716
  Receipt Date: 20120709
  Transmission Date: 20120928
  Serious: No
  Sender: FDA-Public Use
  Company Number: US-009507513-1207USA002106

PATIENT

DRUGS (5)
  1. ZYRTEC [Concomitant]
  2. SINGULAIR [Suspect]
     Indication: RHINITIS ALLERGIC
     Dosage: 4 MG, HS
     Route: 048
     Dates: start: 20120614, end: 20120624
  3. MIRALAX [Concomitant]
     Dosage: UNK
  4. ZANTAC [Concomitant]
  5. SINGULAIR [Suspect]
     Indication: ALLERGY TO ARTHROPOD BITE

REACTIONS (2)
  - LEARNING DISORDER [None]
  - DYSPHEMIA [None]
